APPROVED DRUG PRODUCT: LEVETIRACETAM
Active Ingredient: LEVETIRACETAM
Strength: 100MG/ML
Dosage Form/Route: SOLUTION;ORAL
Application: A090187 | Product #001
Applicant: APOTEX INC
Approved: Aug 5, 2011 | RLD: No | RS: No | Type: DISCN